FAERS Safety Report 17487252 (Version 4)
Quarter: 2021Q2

REPORT INFORMATION
  Report Type: Report from Study
  Country: US (occurrence: US)
  Receive Date: 20200303
  Receipt Date: 20210628
  Transmission Date: 20210716
  Serious: Yes (Death, Hospitalization, Other)
  Sender: FDA-Public Use
  Company Number: US-ASTELLAS-2020US004287

PATIENT
  Age: 91 Year
  Sex: Male

DRUGS (4)
  1. ENZALUTAMIDE [Suspect]
     Active Substance: ENZALUTAMIDE
     Route: 048
  2. VITAMIN D3 [Concomitant]
     Active Substance: CHOLECALCIFEROL
     Indication: PRODUCT USED FOR UNKNOWN INDICATION
     Route: 065
  3. LEVOTHYROXIN [Concomitant]
     Active Substance: LEVOTHYROXINE
     Indication: PRODUCT USED FOR UNKNOWN INDICATION
     Route: 065
  4. ENZALUTAMIDE [Suspect]
     Active Substance: ENZALUTAMIDE
     Indication: PROSTATE CANCER
     Route: 048
     Dates: start: 201910

REACTIONS (17)
  - Hypotension [Recovering/Resolving]
  - Discharge [Unknown]
  - Gait disturbance [Unknown]
  - Death [Fatal]
  - Mobility decreased [Unknown]
  - Decreased appetite [Recovering/Resolving]
  - Kidney infection [Recovering/Resolving]
  - Abdominal pain upper [Unknown]
  - Tremor [Unknown]
  - Weight decreased [Not Recovered/Not Resolved]
  - Asthenia [Unknown]
  - Near death experience [Unknown]
  - Chronic kidney disease [Unknown]
  - Urinary tract infection [Recovering/Resolving]
  - Urinary retention [Unknown]
  - Vomiting [Unknown]
  - Gastrooesophageal reflux disease [Unknown]

NARRATIVE: CASE EVENT DATE: 20191128
